FAERS Safety Report 23090270 (Version 1)
Quarter: 2023Q4

REPORT INFORMATION
  Report Type: Spontaneous
  Country: US (occurrence: None)
  Receive Date: 20231019
  Receipt Date: 20231019
  Transmission Date: 20240109
  Serious: Yes (Hospitalization)
  Sender: FDA-Public Use
  Company Number: None

PATIENT
  Sex: Female

DRUGS (11)
  1. TREMFYA [Suspect]
     Active Substance: GUSELKUMAB
     Indication: Psoriatic arthropathy
     Dosage: OTHER FREQUENCY : EVERY 8 WEEKS;?
     Route: 058
     Dates: start: 20230307
  2. TREMFYA [Suspect]
     Active Substance: GUSELKUMAB
     Dosage: OTHER FREQUENCY : EVERY 8 WEEKS;?
     Route: 058
  3. ALBUTEROL AER HFA [Concomitant]
  4. ALPRAZOLAM [Concomitant]
  5. ASPIRIN [Concomitant]
     Active Substance: ASPIRIN
  6. CLOPIDOGREL [Concomitant]
  7. ESCITALOPRAM [Concomitant]
  8. IRBESARTAN [Concomitant]
  9. OMEPRAZOLE [Concomitant]
     Active Substance: OMEPRAZOLE
  10. PREGABALIN [Concomitant]
  11. SPIRONOLACTONE [Concomitant]
     Active Substance: SPIRONOLACTONE

REACTIONS (13)
  - Pulmonary thrombosis [None]
  - Near death experience [None]
  - Asthenia [None]
  - Dizziness [None]
  - Pain [None]
  - Loss of consciousness [None]
  - Musculoskeletal disorder [None]
  - Stent placement [None]
  - Aortic dilatation [None]
  - Pain [None]
  - Pruritus [None]
  - Condition aggravated [None]
  - Feeling abnormal [None]
